FAERS Safety Report 9599330 (Version 2)
Quarter: 2013Q4

REPORT INFORMATION
  Report Type: Spontaneous
  Country: US (occurrence: US)
  Receive Date: 20131004
  Receipt Date: 20131004
  Transmission Date: 20140711
  Serious: No
  Sender: FDA-Public Use
  Company Number: US-AMGEN-USASP2013020505

PATIENT
  Age: 49 Year
  Sex: Female
  Weight: 83.9 kg

DRUGS (16)
  1. ENBREL [Suspect]
     Indication: PRODUCT USED FOR UNKNOWN INDICATION
     Dosage: 50 MG, QWK
     Route: 058
  2. KLONOPIN [Concomitant]
     Dosage: 0.5 MG, UNK
  3. TORADOL [Concomitant]
     Dosage: 10 MG, UNK
     Route: 048
  4. PHENERGAN                          /00033001/ [Concomitant]
     Dosage: 25 MG, UNK
  5. PAXIL                              /00500401/ [Concomitant]
     Dosage: 30 MG, UNK
  6. TOPAMAX [Concomitant]
     Dosage: 50 MG, UNK
  7. GABAPENTIN [Concomitant]
     Dosage: 100 MG, UNK
  8. PREVACID [Concomitant]
     Dosage: 15 MG, (DR) UNK
  9. VERAPAMIL [Concomitant]
     Dosage: 180 MG, (ER)  UNK
  10. TRAZODONE [Concomitant]
     Dosage: 150 MG, UNK
  11. LIDODERM [Concomitant]
     Dosage: 5 %, UNK
  12. POTASSIUM [Concomitant]
     Dosage: 99 MG, UNK
  13. FLEXERIL                           /00428402/ [Concomitant]
     Dosage: 5 MG, UNK
  14. LORTAB                             /00607101/ [Concomitant]
     Dosage: UNK (5 TAB)
  15. MAXZIDE [Concomitant]
     Dosage: 75-50
  16. VYTORIN [Concomitant]
     Dosage: 10-80 MG

REACTIONS (6)
  - Injection site pain [Unknown]
  - Injection site reaction [Unknown]
  - Injection site erythema [Unknown]
  - Injection site swelling [Unknown]
  - Injection site pruritus [Unknown]
  - Injection site warmth [Unknown]
